FAERS Safety Report 10066488 (Version 3)
Quarter: 2014Q2

REPORT INFORMATION
  Report Type: Spontaneous
  Country: US (occurrence: US)
  Receive Date: 20140408
  Receipt Date: 20140626
  Transmission Date: 20141212
  Serious: Yes (Other)
  Sender: FDA-Public Use
  Company Number: US-TEVA-474082USA

PATIENT
  Sex: Female

DRUGS (1)
  1. DULOXETINE [Suspect]
     Indication: FIBROMYALGIA
     Dates: start: 20140210

REACTIONS (13)
  - Withdrawal syndrome [Recovering/Resolving]
  - Dizziness [Recovering/Resolving]
  - Diarrhoea [Recovering/Resolving]
  - Anxiety [Recovering/Resolving]
  - Anger [Recovering/Resolving]
  - Insomnia [Recovering/Resolving]
  - Crying [Recovering/Resolving]
  - Agitation [Recovering/Resolving]
  - Tearfulness [Recovering/Resolving]
  - Affect lability [Recovering/Resolving]
  - Drug ineffective [Unknown]
  - Therapeutic response changed [Unknown]
  - Depression [Recovering/Resolving]
